FAERS Safety Report 8053257-2 (Version None)
Quarter: 2012Q1

REPORT INFORMATION
  Report Type: 
  Country: None (occurrence: None)
  Receive Date: 20120118
  Receipt Date: 20120113
  Transmission Date: 20120608
  Serious: Yes (Hospitalization)
  Sender: FDA-Public Use
  Company Number: CA-ROCHE-1030653

PATIENT
  Sex: Female
  Weight: 76 kg

DRUGS (11)
  1. ACETAMINOPHEN [Concomitant]
  2. MABTHERA [Suspect]
     Indication: RHEUMATOID ARTHRITIS
     Dosage: FREQUENCY:DAY 1 AND DAY 15.
     Route: 042
     Dates: start: 20110428
  3. VITAMIN D [Concomitant]
  4. METHOTREXATE [Concomitant]
  5. PREDNISONE [Concomitant]
  6. VITALUX [Concomitant]
     Route: 047
  7. METHYLPREDNISOLONE [Concomitant]
     Route: 042
     Dates: start: 20110512, end: 20110512
  8. FOLIC ACID [Concomitant]
  9. OMEGA (UNK INGREDIENTS) [Concomitant]
  10. CLONAZEPAM [Concomitant]
  11. DIPHENHYDRAMINE HCL [Concomitant]
     Route: 048
     Dates: start: 20110512, end: 20110512

REACTIONS (2)
  - CYSTOCELE [None]
  - NASOPHARYNGITIS [None]
